FAERS Safety Report 6421618-0 (Version None)
Quarter: 2009Q4

REPORT INFORMATION
  Report Type: 
  Country: None (occurrence: None)
  Receive Date: 20091030
  Receipt Date: 20091027
  Transmission Date: 20100525
  Serious: Yes (Hospitalization)
  Sender: FDA-Public Use
  Company Number: BR-WYE-H11864009

PATIENT
  Sex: Female
  Weight: 61 kg

DRUGS (1)
  1. PREMARIN [Suspect]
     Indication: MENOPAUSE
     Dosage: 0.625 MG TABLET; UNSPECIFIED FREQUENCY
     Route: 048

REACTIONS (3)
  - FALLOPIAN TUBE CYST [None]
  - FLUID RETENTION [None]
  - OVARIAN CYST [None]
